FAERS Safety Report 18414458 (Version 2)
Quarter: 2021Q1

REPORT INFORMATION
  Report Type: Report from Study
  Country: EG (occurrence: EG)
  Receive Date: 20201022
  Receipt Date: 20210104
  Transmission Date: 20210419
  Serious: Yes (Death)
  Sender: FDA-Public Use
  Company Number: EG-MYLANLABS-2020M1088452

PATIENT

DRUGS (5)
  1. METHOTREXATE. [Suspect]
     Active Substance: METHOTREXATE
     Dosage: 10 MILLIGRAM DAY +4
     Route: 065
  2. METHOTREXATE. [Suspect]
     Active Substance: METHOTREXATE
     Indication: PROPHYLAXIS AGAINST GRAFT VERSUS HOST DISEASE
     Dosage: 15 MILLIGRAM DAY +2
     Route: 065
  3. MYCOPHENOLATE MOFETIL. [Suspect]
     Active Substance: MYCOPHENOLATE MOFETIL
     Indication: PROPHYLAXIS AGAINST GRAFT VERSUS HOST DISEASE
     Dosage: 2 ?3GM EVERY DAY FROM DAY +1 TILL DAY +30
     Route: 065
  4. METHOTREXATE. [Suspect]
     Active Substance: METHOTREXATE
     Dosage: 10 MILLIGRAM DAY +6
     Route: 065
  5. CICLOSPORIN [Suspect]
     Active Substance: CYCLOSPORINE
     Indication: PROPHYLAXIS AGAINST GRAFT VERSUS HOST DISEASE
     Dosage: 5 MILLIGRAM/KILOGRAM FROM DAY 3 TILL DAY +90
     Route: 065

REACTIONS (1)
  - Nephropathy toxic [Fatal]
